FAERS Safety Report 15282679 (Version 2)
Quarter: 2018Q3

REPORT INFORMATION
  Report Type: Spontaneous
  Country: GR (occurrence: GR)
  Receive Date: 20180816
  Receipt Date: 20180821
  Transmission Date: 20181010
  Serious: Yes (Other)
  Sender: FDA-Public Use
  Company Number: GR-009507513-1808GRC003911

PATIENT
  Sex: Male

DRUGS (1)
  1. ONCOTICE [Suspect]
     Active Substance: BACILLUS CALMETTE-GUERIN SUBSTRAIN TICE LIVE ANTIGEN
     Indication: BLADDER CANCER
     Dosage: UNK

REACTIONS (10)
  - Device related infection [Unknown]
  - Pyrexia [Recovered/Resolved]
  - Headache [Unknown]
  - Exposure via body fluid [Unknown]
  - Dry mouth [Unknown]
  - C-reactive protein increased [Unknown]
  - Infusion site haemorrhage [Unknown]
  - Pyrexia [Not Recovered/Not Resolved]
  - Blood bilirubin increased [Unknown]
  - Hepatic enzyme increased [Unknown]

NARRATIVE: CASE EVENT DATE: 201808
